FAERS Safety Report 7331822-5 (Version None)
Quarter: 2011Q1

REPORT INFORMATION
  Report Type: 
  Country: None (occurrence: None)
  Receive Date: 20110304
  Receipt Date: 20110224
  Transmission Date: 20110831
  Serious: Yes (Hospitalization)
  Sender: FDA-Public Use
  Company Number: GB-MILLENNIUM PHARMACEUTICALS, INC.-2011-00357

PATIENT

DRUGS (6)
  1. DOXORUBICIN [Suspect]
     Indication: MANTLE CELL LYMPHOMA
  2. PREDNISONE [Suspect]
     Indication: MANTLE CELL LYMPHOMA
  3. VELCADE [Suspect]
     Indication: MANTLE CELL LYMPHOMA
     Dosage: UNK
     Route: 065
  4. VINCRISTINE [Suspect]
     Indication: MANTLE CELL LYMPHOMA
  5. RAMIPRIL [Concomitant]
     Indication: HYPERTENSION
     Dosage: 2.25 MG, UNK
     Route: 048
     Dates: start: 20090701
  6. CYCLOPHOSPHAMIDE [Suspect]
     Indication: MANTLE CELL LYMPHOMA

REACTIONS (2)
  - INFECTION [None]
  - PNEUMONIA [None]
